FAERS Safety Report 13016654 (Version 1)
Quarter: 2016Q4

REPORT INFORMATION
  Report Type: Spontaneous
  Country: US (occurrence: US)
  Receive Date: 20161212
  Receipt Date: 20161212
  Transmission Date: 20170207
  Serious: No
  Sender: FDA-Public Use
  Company Number: US-ASTRAZENECA-2016SF21009

PATIENT
  Sex: Female
  Weight: 55.8 kg

DRUGS (20)
  1. BRILINTA [Suspect]
     Active Substance: TICAGRELOR
     Indication: CARDIAC DISORDER
     Route: 048
     Dates: start: 20160923
  2. COMBIVANT RESPIMAT [Concomitant]
     Indication: ASTHMA
     Dosage: 20.0MG AS REQUIRED
     Route: 055
     Dates: start: 2010
  3. FENESIN [Concomitant]
     Active Substance: GUAIFENESIN
     Indication: DRY THROAT
     Dosage: 100.0MG AS REQUIRED
     Route: 048
  4. CLARITIN [Concomitant]
     Active Substance: LORATADINE
     Indication: HYPERSENSITIVITY
     Route: 048
     Dates: start: 2015
  5. SYNTHROID [Concomitant]
     Active Substance: LEVOTHYROXINE SODIUM
     Indication: THYROID DISORDER
     Route: 048
  6. NORVASC [Concomitant]
     Active Substance: AMLODIPINE BESYLATE
     Route: 048
  7. BENADRYL [Concomitant]
     Active Substance: DIPHENHYDRAMINE HYDROCHLORIDE
     Indication: ARTHROPOD STING
     Dosage: 20.0MG AS REQUIRED
     Route: 048
  8. BRILINTA [Suspect]
     Active Substance: TICAGRELOR
     Indication: STENT PLACEMENT
     Route: 048
     Dates: start: 20160826
  9. BRILINTA [Suspect]
     Active Substance: TICAGRELOR
     Indication: ACUTE CORONARY SYNDROME
     Route: 048
     Dates: start: 20160826
  10. KOLONOPIN [Concomitant]
     Indication: SEIZURE
     Route: 048
     Dates: start: 1985
  11. PANTOPRAZOLE SODIUM. [Concomitant]
     Active Substance: PANTOPRAZOLE SODIUM
     Indication: GASTROOESOPHAGEAL REFLUX DISEASE
     Route: 048
  12. SOMA [Concomitant]
     Active Substance: CARISOPRODOL
     Indication: SEIZURE
     Route: 048
     Dates: start: 1985
  13. BRILINTA [Suspect]
     Active Substance: TICAGRELOR
     Indication: CARDIAC DISORDER
     Route: 048
     Dates: start: 20160826
  14. CARVEDILOL. [Concomitant]
     Active Substance: CARVEDILOL
     Indication: BLOOD PRESSURE ABNORMAL
     Route: 048
     Dates: start: 2015
  15. ASPIRIN. [Concomitant]
     Active Substance: ASPIRIN
     Route: 048
     Dates: start: 2013
  16. BENADRYL [Concomitant]
     Active Substance: DIPHENHYDRAMINE HYDROCHLORIDE
     Indication: ARTHROPOD STING
     Dosage: 20.0MG AS REQUIRED
     Route: 048
  17. VITAMIN D [Concomitant]
     Active Substance: CHOLECALCIFEROL
     Indication: VITAMIN D DECREASED
     Route: 048
     Dates: start: 201607
  18. FENESIN [Concomitant]
     Active Substance: GUAIFENESIN
     Indication: COUGH
     Dosage: 100.0MG AS REQUIRED
     Route: 048
  19. BRILINTA [Suspect]
     Active Substance: TICAGRELOR
     Indication: STENT PLACEMENT
     Route: 048
     Dates: start: 20160923
  20. BRILINTA [Suspect]
     Active Substance: TICAGRELOR
     Indication: ACUTE CORONARY SYNDROME
     Route: 048
     Dates: start: 20160923

REACTIONS (13)
  - Dysgraphia [Unknown]
  - Contusion [Unknown]
  - Visual impairment [Unknown]
  - Decreased appetite [Unknown]
  - Muscle spasms [Unknown]
  - Malaise [Unknown]
  - Asthenia [Unknown]
  - Depressed mood [Unknown]
  - Limb injury [Unknown]
  - Skin odour abnormal [Unknown]
  - Off label use [Unknown]
  - Dysgeusia [Unknown]
  - Haemorrhage [Unknown]
